FAERS Safety Report 5499431-0 (Version None)
Quarter: 2007Q4

REPORT INFORMATION
  Report Type: 
  Country: None (occurrence: None)
  Receive Date: 20071026
  Receipt Date: 20071017
  Transmission Date: 20080405
  Serious: Yes (Other)
  Sender: FDA-Public Use
  Company Number: US-ASTRAZENECA-2007UW21081

PATIENT
  Age: 53 Year
  Sex: Male
  Weight: 141.8 kg

DRUGS (11)
  1. SEROQUEL [Suspect]
     Indication: MENTAL DISORDER
     Route: 048
     Dates: start: 20030301, end: 20070101
  2. ABILIFY [Concomitant]
     Dates: start: 20030101, end: 20040101
  3. GEODON [Concomitant]
     Dates: start: 20010101, end: 20070101
  4. HALDOL [Concomitant]
  5. NAVANE [Concomitant]
  6. RISPERDAL [Concomitant]
     Dates: start: 20060101
  7. SOLIAN [Concomitant]
  8. STELAZINE [Concomitant]
  9. THORAZINE [Concomitant]
  10. TRILAFON [Concomitant]
     Dates: start: 19670101
  11. ZYPREXA [Concomitant]
     Dates: start: 19990101

REACTIONS (6)
  - ANXIETY [None]
  - DIABETES MELLITUS [None]
  - DIABETIC NEUROPATHY [None]
  - OBESITY [None]
  - TARDIVE DYSKINESIA [None]
  - WEIGHT INCREASED [None]
